FAERS Safety Report 9743173 (Version 1)
Quarter: 2013Q4

REPORT INFORMATION
  Report Type: Spontaneous
  Country: US (occurrence: US)
  Receive Date: 20131210
  Receipt Date: 20131210
  Transmission Date: 20140711
  Serious: No
  Sender: FDA-Public Use
  Company Number: US-GILEAD-2009-0024863

PATIENT
  Sex: Male
  Weight: 83.91 kg

DRUGS (5)
  1. LETAIRIS [Suspect]
     Indication: PULMONARY ARTERIAL HYPERTENSION
     Route: 048
     Dates: start: 20080529
  2. REVATIO [Concomitant]
  3. RESTORIL [Concomitant]
  4. SENSIPAR [Concomitant]
  5. TRAMADOL [Concomitant]

REACTIONS (3)
  - Pain in extremity [Unknown]
  - Fatigue [Unknown]
  - Decreased appetite [Unknown]
